FAERS Safety Report 16782008 (Version 7)
Quarter: 2020Q2

REPORT INFORMATION
  Report Type: Report from Study
  Country: JP (occurrence: JP)
  Receive Date: 20190906
  Receipt Date: 20200519
  Transmission Date: 20200713
  Serious: Yes (Death, Life-Threatening, Other)
  Sender: FDA-Public Use
  Company Number: JP-PFIZER INC-2019387798

PATIENT
  Age: 7 Month
  Sex: Male
  Weight: 3.5 kg

DRUGS (10)
  1. CALCICOL [Concomitant]
     Active Substance: CALCIUM GLUCONATE
     Dosage: UNK
     Route: 065
     Dates: end: 20190810
  2. CEFOTIAM [Concomitant]
     Active Substance: CEFOTIAM
     Dosage: UNK
     Route: 065
     Dates: start: 20190726, end: 20190730
  3. THYRADIN [Concomitant]
     Active Substance: LEVOTHYROXINE
     Dosage: UNK
     Route: 048
     Dates: end: 20190810
  4. RAPALIMUS [Suspect]
     Active Substance: SIROLIMUS
     Indication: LYMPHANGIOMA
     Dosage: 0.6 MG, 1X/DAY
     Route: 048
     Dates: start: 20190726, end: 20190806
  5. VANCOMYCIN [Concomitant]
     Active Substance: VANCOMYCIN
     Dosage: UNK
     Route: 065
     Dates: start: 20190726, end: 20190804
  6. DOPAMINE [Concomitant]
     Active Substance: DOPAMINE HYDROCHLORIDE
     Dosage: UNK
     Route: 065
     Dates: start: 20190810
  7. MEYLON [Concomitant]
     Active Substance: SODIUM BICARBONATE
     Dosage: UNK
     Route: 065
     Dates: start: 20190810
  8. INDERAL [Concomitant]
     Active Substance: PROPRANOLOL HYDROCHLORIDE
     Dosage: UNK
     Route: 048
     Dates: start: 20190810
  9. ALBUMIN [Concomitant]
     Active Substance: ALBUMIN HUMAN
     Indication: LYMPHANGIOMA
     Dosage: UNK
     Route: 042
     Dates: start: 20190810
  10. KAYTWO [Concomitant]
     Active Substance: MENATETRENONE
     Indication: PROPHYLAXIS
     Dosage: UNK
     Route: 065
     Dates: start: 20190726, end: 20190805

REACTIONS (8)
  - Septic shock [Fatal]
  - Product administered to patient of inappropriate age [Unknown]
  - Exfoliative rash [Fatal]
  - Drug level increased [Not Recovered/Not Resolved]
  - Impaired healing [Fatal]
  - Wrong technique in product usage process [Unknown]
  - Stomatitis [Fatal]
  - Mucosal disorder [Fatal]

NARRATIVE: CASE EVENT DATE: 20190726
